FAERS Safety Report 7401598-1 (Version None)
Quarter: 2011Q2

REPORT INFORMATION
  Report Type: 
  Country: None (occurrence: None)
  Receive Date: 20110408
  Receipt Date: 20110404
  Transmission Date: 20111010
  Serious: No
  Sender: FDA-Public Use
  Company Number: US-BIOGENIDEC-2011BI006686

PATIENT
  Age: 37 Year
  Sex: Female

DRUGS (1)
  1. TYSABRI [Suspect]
     Indication: MULTIPLE SCLEROSIS
     Route: 042
     Dates: start: 20110204

REACTIONS (5)
  - PRURITUS [None]
  - BRONCHITIS [None]
  - CENTRAL VENOUS CATHETERISATION [None]
  - POOR VENOUS ACCESS [None]
  - INFLUENZA LIKE ILLNESS [None]
